FAERS Safety Report 18395579 (Version 1)
Quarter: 2020Q4

REPORT INFORMATION
  Report Type: Report from Study
  Country: US (occurrence: US)
  Receive Date: 20201017
  Receipt Date: 20201017
  Transmission Date: 20210114
  Serious: Yes (Death, Other)
  Sender: FDA-Public Use
  Company Number: US-AUROBINDO-AUR-APL-2020-052987

PATIENT
  Sex: Male
  Weight: 105.5 kg

DRUGS (1)
  1. EVOMELA [Suspect]
     Active Substance: MELPHALAN HYDROCHLORIDE
     Indication: BONE MARROW CONDITIONING REGIMEN
     Dosage: 137.2 MILLIGRAM, ONCE
     Route: 042
     Dates: start: 20200311, end: 20200311

REACTIONS (3)
  - Acute myeloid leukaemia [Fatal]
  - Benign neoplasm [Unknown]
  - Neoplasm malignant [Unknown]
